FAERS Safety Report 15593078 (Version 6)
Quarter: 2019Q1

REPORT INFORMATION
  Report Type: Spontaneous
  Country: US (occurrence: US)
  Receive Date: 20181106
  Receipt Date: 20190318
  Transmission Date: 20190417
  Serious: No
  Sender: FDA-Public Use
  Company Number: US-PFIZER INC-2018447404

PATIENT
  Age: 51 Year
  Sex: Male
  Weight: 131.5 kg

DRUGS (2)
  1. LYRICA [Suspect]
     Active Substance: PREGABALIN
     Dosage: UNK, 1X/DAY [2 PILLS BY MOUTH A DAY]
     Route: 048
  2. LYRICA [Suspect]
     Active Substance: PREGABALIN
     Indication: NEURALGIA
     Dosage: 300 MG, UNK

REACTIONS (4)
  - Gait disturbance [Unknown]
  - Burning sensation [Unknown]
  - Limb discomfort [Unknown]
  - Drug withdrawal syndrome [Unknown]
